FAERS Safety Report 7602376-0 (Version None)
Quarter: 2011Q3

REPORT INFORMATION
  Report Type: 
  Country: None (occurrence: None)
  Receive Date: 20110712
  Receipt Date: 20110706
  Transmission Date: 20111222
  Serious: Yes (Hospitalization)
  Sender: FDA-Public Use
  Company Number: US-BIOGENIDEC-2011BI021801

PATIENT
  Age: 43 Year
  Sex: Female

DRUGS (5)
  1. FENTANYL-100 [Concomitant]
     Indication: PAIN IN EXTREMITY
  2. COUMADIN [Concomitant]
     Indication: PULMONARY THROMBOSIS
  3. FENTANYL-100 [Concomitant]
     Indication: BACK PAIN
  4. TYSABRI [Suspect]
     Indication: MULTIPLE SCLEROSIS
     Route: 042
     Dates: start: 20110412
  5. COUMADIN [Concomitant]
     Indication: THROMBOSIS

REACTIONS (8)
  - SINUSITIS [None]
  - SOMNOLENCE [None]
  - NAUSEA [None]
  - MULTIPLE SCLEROSIS RELAPSE [None]
  - NASOPHARYNGITIS [None]
  - FATIGUE [None]
  - HEADACHE [None]
  - DISORIENTATION [None]
